FAERS Safety Report 6760865-5 (Version None)
Quarter: 2010Q2

REPORT INFORMATION
  Report Type: 
  Country: None (occurrence: None)
  Receive Date: 20100608
  Receipt Date: 20100526
  Transmission Date: 20101027
  Serious: Yes (Other)
  Sender: FDA-Public Use
  Company Number: PHHY2010US26188

PATIENT
  Sex: Female

DRUGS (1)
  1. RECLAST [Suspect]
     Indication: OSTEITIS DEFORMANS
     Route: 042

REACTIONS (3)
  - DRUG ADMINISTRATION ERROR [None]
  - HYPERTENSION [None]
  - OSTEITIS DEFORMANS [None]
